FAERS Safety Report 5642787-6 (Version None)
Quarter: 2008Q1

REPORT INFORMATION
  Report Type: 
  Country: None (occurrence: None)
  Receive Date: 20080228
  Receipt Date: 20080220
  Transmission Date: 20080703
  Serious: Yes (Life-Threatening)
  Sender: FDA-Public Use
  Company Number: JP-BAYER-200810309BYL

PATIENT
  Age: 55 Year
  Sex: Male

DRUGS (2)
  1. ASPIRIN [Suspect]
     Indication: THROMBOSIS PROPHYLAXIS
     Route: 048
     Dates: end: 20070101
  2. TICLOPIDINE HCL [Suspect]
     Indication: THROMBOSIS PROPHYLAXIS
     Route: 048
     Dates: end: 20070101

REACTIONS (2)
  - GASTRIC ULCER HAEMORRHAGE [None]
  - SHOCK HAEMORRHAGIC [None]
